FAERS Safety Report 10221596 (Version 1)
Quarter: 2014Q1

REPORT INFORMATION
  Report Type: Spontaneous
  Country: US (occurrence: None)
  Receive Date: 20140306
  Receipt Date: 20140306
  Transmission Date: 20141002
  Serious: Yes (Other)
  Sender: FDA-Public Use
  Company Number: 163-21880-13101756

PATIENT
  Age: 68 Year
  Sex: Male

DRUGS (9)
  1. REVLIMID [Suspect]
     Indication: PLASMA CELL MYELOMA
     Dosage: 15 MG, 21 IN 21 D, PO
     Route: 048
     Dates: start: 20130926
  2. AMLODIPINE BESYLATE (AMLODIPINE BESILATE) [Concomitant]
  3. ASPIRIN (ACETYLSALICYLIC ACID) [Concomitant]
  4. BICALUTAMIDE (BICALUTAMIDE) [Concomitant]
  5. DEXAMETHASONE (DEXAMETHASONE) [Concomitant]
  6. FAMICICLOVIR (FAMCICLOVIR) [Concomitant]
  7. GABAPENTIN (GABAPENTIN) [Concomitant]
  8. LORAZEPAM (LORAZEPAM) [Concomitant]
  9. PROCHLORPERAZINE MALEATE (PROCHLORPERAZINE MALEATE) [Concomitant]

REACTIONS (1)
  - Thrombosis [None]
